FAERS Safety Report 13102278 (Version 5)
Quarter: 2017Q2

REPORT INFORMATION
  Report Type: Spontaneous
  Country: US (occurrence: US)
  Receive Date: 20170110
  Receipt Date: 20170407
  Transmission Date: 20170830
  Serious: Yes (Other)
  Sender: FDA-Public Use
  Company Number: US-PFIZER INC-2016548221

PATIENT
  Age: 67 Year
  Sex: Male
  Weight: 75 kg

DRUGS (8)
  1. SUTENT [Suspect]
     Active Substance: SUNITINIB MALATE
     Indication: RENAL CANCER METASTATIC
     Dosage: 50 MG, CYCLIC (ONCE A DAY DAY 1 TO 28 EVERY 42 DAYS
     Route: 048
  2. GLIPIZIDE. [Concomitant]
     Active Substance: GLIPIZIDE
     Dosage: 10 MG, 1X/DAY
     Route: 048
  3. IMODIUM [Concomitant]
     Active Substance: LOPERAMIDE HYDROCHLORIDE
     Dosage: UNK
  4. SUTENT [Suspect]
     Active Substance: SUNITINIB MALATE
     Dosage: 50 MG, CYCLIC [28 DAYS ON/14 DAYS OFF]
     Dates: start: 20170105, end: 20170308
  5. LISINOPRIL. [Concomitant]
     Active Substance: LISINOPRIL
     Dosage: 10 MG, 1X/DAY
     Route: 048
  6. SUTENT [Suspect]
     Active Substance: SUNITINIB MALATE
     Dosage: 50 MG, CYCLIC (28 DAYS ON/14 DAYS OFF)
     Route: 048
     Dates: start: 20161210, end: 20161228
  7. METFORMIN [Concomitant]
     Active Substance: METFORMIN HYDROCHLORIDE
     Dosage: 500 MG, 2X/DAY
     Route: 048
  8. TYLENOL [Concomitant]
     Active Substance: ACETAMINOPHEN
     Dosage: UNK

REACTIONS (18)
  - Blood glucose decreased [Unknown]
  - Abdominal pain upper [Unknown]
  - Pruritus [Unknown]
  - Haemorrhage [Unknown]
  - Oral pain [Recovering/Resolving]
  - Blood test abnormal [Unknown]
  - Mouth haemorrhage [Unknown]
  - Hypotension [Unknown]
  - Diarrhoea [Recovering/Resolving]
  - Fatigue [Unknown]
  - Oral discomfort [Recovering/Resolving]
  - Weight fluctuation [Recovering/Resolving]
  - Pain in extremity [Unknown]
  - Pain [Unknown]
  - Feeling abnormal [Unknown]
  - Anaemia [Unknown]
  - Bone pain [Recovering/Resolving]
  - Gingival bleeding [Unknown]
